FAERS Safety Report 5097971-X (Version None)
Quarter: 2006Q3

REPORT INFORMATION
  Report Type: 
  Country: None (occurrence: None)
  Receive Date: 20060905
  Receipt Date: 20060825
  Transmission Date: 20061208
  Serious: Yes (Life-Threatening, Hospitalization)
  Sender: FDA-Public Use
  Company Number: GXKR2006GB05263

PATIENT
  Sex: 0
  Weight: 58 kg

DRUGS (6)
  1. ALLOPURINOL [Suspect]
     Dosage: ORAL
     Route: 048
     Dates: start: 20060307, end: 20060331
  2. ASPIRIN [Concomitant]
  3. FUROSEMIDE [Concomitant]
  4. GLICLAZIDE (GLICLAZIDE) [Concomitant]
  5. LEVOTHYROXINE SODIUM [Concomitant]
  6. LISINOPRIL [Concomitant]

REACTIONS (2)
  - HYPOTENSION [None]
  - RASH [None]
